FAERS Safety Report 17002424 (Version 1)
Quarter: 2019Q4

REPORT INFORMATION
  Report Type: Spontaneous
  Country: TR (occurrence: TR)
  Receive Date: 20191107
  Receipt Date: 20191107
  Transmission Date: 20200122
  Serious: No
  Sender: FDA-Public Use
  Company Number: TR-LUPIN PHARMACEUTICALS INC.-2019-02563

PATIENT
  Age: 60 Year
  Sex: Male

DRUGS (4)
  1. DEXKETOPROFEN [Concomitant]
     Active Substance: DEXKETOPROFEN
     Indication: NEURALGIA
     Dosage: 25 MILLIGRAM, UNK (TO BE USED WHEN THE PAIN INTENSIFIED)
     Route: 065
  2. DEXKETOPROFEN [Concomitant]
     Active Substance: DEXKETOPROFEN
     Indication: FIBROMYALGIA
  3. DULOXETINE. [Suspect]
     Active Substance: DULOXETINE
     Indication: FIBROMYALGIA
  4. DULOXETINE. [Suspect]
     Active Substance: DULOXETINE
     Indication: NEURALGIA
     Dosage: 30 MILLIGRAM, QD
     Route: 065

REACTIONS (2)
  - Dystonia [Recovered/Resolved]
  - Tardive dyskinesia [Recovered/Resolved]
